FAERS Safety Report 17805157 (Version 3)
Quarter: 2020Q2

REPORT INFORMATION
  Report Type: Spontaneous
  Country: US (occurrence: US)
  Receive Date: 20200520
  Receipt Date: 20200528
  Transmission Date: 20200714
  Serious: Yes (Other)
  Sender: FDA-Public Use
  Company Number: US-GLAXOSMITHKLINE-US2020082524

PATIENT
  Sex: Female

DRUGS (2)
  1. MONTELUKAST [Suspect]
     Active Substance: MONTELUKAST SODIUM
     Indication: PRODUCT USED FOR UNKNOWN INDICATION
     Dosage: UNK
     Route: 065
  2. ANORO ELLIPTA [Suspect]
     Active Substance: UMECLIDINIUM BROMIDE\VILANTEROL TRIFENATATE
     Indication: MULTIPLE ALLERGIES
     Dosage: UNK
     Route: 065
     Dates: start: 2018

REACTIONS (9)
  - Cough [Unknown]
  - Peripheral venous disease [Unknown]
  - Product use in unapproved indication [Unknown]
  - Thrombosis [Recovered/Resolved]
  - Joint swelling [Recovered/Resolved]
  - Product dose omission [Unknown]
  - Arthralgia [Unknown]
  - Overdose [Unknown]
  - Fall [Unknown]

NARRATIVE: CASE EVENT DATE: 2019
